FAERS Safety Report 14093476 (Version 2)
Quarter: 2018Q1

REPORT INFORMATION
  Report Type: Report from Study
  Country: ZA (occurrence: ZA)
  Receive Date: 20171016
  Receipt Date: 20180312
  Transmission Date: 20180508
  Serious: Yes (Hospitalization)
  Sender: FDA-Public Use
  Company Number: PHHY2017ZA150611

PATIENT
  Sex: Male
  Weight: 154 kg

DRUGS (2)
  1. ENTRESTO [Suspect]
     Active Substance: SACUBITRIL\VALSARTAN
     Indication: PRODUCT USED FOR UNKNOWN INDICATION
     Dosage: 200 MG (SACUBITRIL 97 MG/VALSARTAN 103 MG), BID
     Route: 048
     Dates: end: 20180205
  2. EPEX [Concomitant]
     Indication: PRODUCT USED FOR UNKNOWN INDICATION
     Dosage: UNK UNK, TIW
     Route: 065

REACTIONS (9)
  - Renal failure [Recovering/Resolving]
  - Iron deficiency [Recovering/Resolving]
  - Influenza [Unknown]
  - Gastrointestinal disorder [Recovering/Resolving]
  - Magnesium deficiency [Recovering/Resolving]
  - Diarrhoea [Unknown]
  - Malaise [Unknown]
  - Calcium deficiency [Recovering/Resolving]
  - Upper respiratory tract infection [Unknown]
